FAERS Safety Report 6934873-5 (Version None)
Quarter: 2010Q3

REPORT INFORMATION
  Report Type: 
  Country: None (occurrence: None)
  Receive Date: 20100821
  Receipt Date: 20100806
  Transmission Date: 20110219
  Serious: Yes (Other)
  Sender: FDA-Public Use
  Company Number: PHHY2010DE52656

PATIENT
  Age: 71 Year
  Sex: Female

DRUGS (5)
  1. RASILEZ [Suspect]
     Indication: HYPERTENSION
     Dosage: 1 DF, QD
     Dates: start: 20100401, end: 20100601
  2. RASILEZ [Suspect]
     Dosage: 0.5 DF, QD
     Dates: start: 20100601
  3. ENALAPRIL MALEATE [Concomitant]
     Indication: HYPERTENSION
     Dosage: 10 MG, BID
  4. ASPIRIN [Concomitant]
     Dosage: 100 MG
  5. VITOPTAL [Concomitant]
     Indication: MACULAR DEGENERATION
     Dosage: UNK

REACTIONS (4)
  - ARRHYTHMIA [None]
  - BLOOD PRESSURE DECREASED [None]
  - EXTRASYSTOLES [None]
  - MUSCLE SPASMS [None]
